FAERS Safety Report 7858233-8 (Version None)
Quarter: 2011Q4

REPORT INFORMATION
  Report Type: 
  Country: None (occurrence: None)
  Receive Date: 20111027
  Receipt Date: 20111013
  Transmission Date: 20120403
  Serious: Yes (Hospitalization)
  Sender: FDA-Public Use
  Company Number: US-BAYER-2011-050558

PATIENT
  Age: 39 Year
  Sex: Female
  Weight: 70.295 kg

DRUGS (6)
  1. YASMIN [Suspect]
     Indication: CONTRACEPTION
     Dosage: UNK
     Dates: start: 20000101, end: 20030101
  2. YAZ [Suspect]
     Indication: CONTRACEPTION
     Dosage: UNK
     Dates: start: 20080101, end: 20090101
  3. YASMIN [Suspect]
     Indication: WEIGHT FLUCTUATION
  4. YAZ [Suspect]
     Indication: HORMONE REPLACEMENT THERAPY
  5. YASMIN [Suspect]
     Indication: HORMONE REPLACEMENT THERAPY
  6. YAZ [Suspect]
     Indication: WEIGHT FLUCTUATION

REACTIONS (5)
  - PAIN [None]
  - OEDEMA PERIPHERAL [None]
  - ABASIA [None]
  - DEEP VEIN THROMBOSIS [None]
  - INJURY [None]
